FAERS Safety Report 9769001 (Version 1)
Quarter: 2013Q4

REPORT INFORMATION
  Report Type: Spontaneous
  Country: US (occurrence: US)
  Receive Date: 20131218
  Receipt Date: 20131218
  Transmission Date: 20140711
  Serious: No
  Sender: FDA-Public Use
  Company Number: US-BAYER-2013-151754

PATIENT
  Age: 14 Year
  Sex: Female

DRUGS (2)
  1. ULTRAVIST INJECTION [Suspect]
     Indication: COMPUTERISED TOMOGRAM ABDOMEN
     Dosage: 100 ML, ONCE
     Route: 042
     Dates: start: 20131108, end: 20131108
  2. ULTRAVIST INJECTION [Suspect]
     Indication: APPENDICITIS

REACTIONS (3)
  - Swelling face [None]
  - Sneezing [None]
  - Pruritus generalised [None]
